FAERS Safety Report 7965149-5 (Version None)
Quarter: 2011Q4

REPORT INFORMATION
  Report Type: 
  Country: None (occurrence: None)
  Receive Date: 20111205
  Receipt Date: 20111124
  Transmission Date: 20120403
  Serious: Yes (Other)
  Sender: FDA-Public Use
  Company Number: LEO-2011-01049

PATIENT
  Age: 78 Year
  Sex: Male
  Weight: 72.57 kg

DRUGS (5)
  1. OXYCODONE HCL [Concomitant]
  2. CHEMOTHERAPY (CHEMOTHERAPEUTICS) [Concomitant]
  3. AMLODIPINE [Concomitant]
  4. ATENOLOL [Concomitant]
  5. INNOHEP [Suspect]
     Indication: PRODUCT USED FOR UNKNOWN INDICATION
     Dosage: SUBCUTANEOUS
     Route: 058
     Dates: start: 20111027, end: 20111121

REACTIONS (5)
  - ASTHENIA [None]
  - DIZZINESS [None]
  - SYNCOPE [None]
  - HYPERHIDROSIS [None]
  - COLD SWEAT [None]
